FAERS Safety Report 11121054 (Version 3)
Quarter: 2015Q4

REPORT INFORMATION
  Report Type: Spontaneous
  Country: GB (occurrence: GB)
  Receive Date: 20150519
  Receipt Date: 20151019
  Transmission Date: 20160304
  Serious: Yes (Hospitalization)
  Sender: FDA-Public Use
  Company Number: GB-TEVA-562242ACC

PATIENT
  Age: 32 Year
  Sex: Female
  Weight: 52 kg

DRUGS (10)
  1. NITROFURANTOIN. [Suspect]
     Active Substance: NITROFURANTOIN
     Indication: URINARY TRACT INFECTION
     Route: 065
  2. FLAGYL [Suspect]
     Active Substance: METRONIDAZOLE\METRONIDAZOLE HYDROCHLORIDE
     Indication: PELVIC PAIN
     Dosage: 1200 MILLIGRAM DAILY;
     Route: 048
     Dates: start: 20150323, end: 20150327
  3. FLAGYL [Suspect]
     Active Substance: METRONIDAZOLE\METRONIDAZOLE HYDROCHLORIDE
     Indication: PYREXIA
  4. OFLOXACIN. [Suspect]
     Active Substance: OFLOXACIN
     Indication: PELVIC INFLAMMATORY DISEASE
  5. IRON [Concomitant]
     Active Substance: IRON
     Indication: IRON DEFICIENCY
  6. FLAGYL [Suspect]
     Active Substance: METRONIDAZOLE\METRONIDAZOLE HYDROCHLORIDE
     Indication: BACTERIAL VAGINOSIS
     Route: 065
     Dates: start: 201502
  7. FLAGYL [Suspect]
     Active Substance: METRONIDAZOLE\METRONIDAZOLE HYDROCHLORIDE
     Indication: POSTOPERATIVE WOUND INFECTION
     Route: 065
     Dates: start: 20150430, end: 20150501
  8. OFLOXACIN. [Suspect]
     Active Substance: OFLOXACIN
     Indication: PELVIC PAIN
     Dosage: 800 MILLIGRAM DAILY;
     Route: 048
     Dates: start: 20150323, end: 20150327
  9. FLAGYL [Suspect]
     Active Substance: METRONIDAZOLE\METRONIDAZOLE HYDROCHLORIDE
     Indication: PELVIC INFLAMMATORY DISEASE
  10. IRON [Concomitant]
     Active Substance: IRON
     Indication: ANAEMIA

REACTIONS (9)
  - Anxiety [Unknown]
  - Limb discomfort [Unknown]
  - Seizure [Unknown]
  - Nausea [Recovered/Resolved]
  - Vertigo [Unknown]
  - Nervous system disorder [Unknown]
  - Transient ischaemic attack [Unknown]
  - Tremor [Unknown]
  - Vomiting [Unknown]

NARRATIVE: CASE EVENT DATE: 2015
